FAERS Safety Report 9870582 (Version 1)
Quarter: 2014Q1

REPORT INFORMATION
  Report Type: Spontaneous
  Country: FR (occurrence: FR)
  Receive Date: 20140205
  Receipt Date: 20140205
  Transmission Date: 20141002
  Serious: Yes (Other)
  Sender: FDA-Public Use
  Company Number: FR-ALLERGAN-1401754US

PATIENT
  Sex: Female

DRUGS (1)
  1. OZURDEX [Suspect]
     Indication: MACULAR OEDEMA
     Dosage: 700 ?G, SINGLE
     Route: 031
     Dates: start: 201312, end: 201312

REACTIONS (2)
  - Vitreous haemorrhage [Not Recovered/Not Resolved]
  - Off label use [Unknown]
